FAERS Safety Report 8049236-1 (Version None)
Quarter: 2012Q1

REPORT INFORMATION
  Report Type: 
  Country: None (occurrence: None)
  Receive Date: 20120117
  Receipt Date: 20120110
  Transmission Date: 20120608
  Serious: Yes (Death, Other)
  Sender: FDA-Public Use
  Company Number: US-BAYER-200940609NA

PATIENT
  Age: 50 Year
  Sex: Male
  Weight: 131.52 kg

DRUGS (16)
  1. FRESH FROZEN PLASMA [Concomitant]
     Dosage: 3 U, UNK
  2. VERSED [Concomitant]
     Dosage: UNK
     Route: 042
     Dates: start: 20050401
  3. HYZAAR [Concomitant]
  4. TRASYLOL [Suspect]
     Indication: AORTIC DISSECTION
     Dosage: 200CC LOADING DOSE, FOLLOWED BY 50CC PER HOUR
  5. FRESH FROZEN PLASMA [Concomitant]
     Dosage: 6 U, UNK
     Dates: start: 20050401
  6. FENTANYL [Concomitant]
     Dosage: UNK
     Route: 042
     Dates: start: 20050401
  7. ANCEF [Concomitant]
  8. LOPRESSOR [Concomitant]
     Route: 048
  9. TRASYLOL [Suspect]
     Indication: CORONARY ARTERY BYPASS
     Dosage: 600 ML, UNK
     Route: 042
     Dates: start: 20050401, end: 20050401
  10. PAVULON [Concomitant]
     Dosage: UNK
     Route: 042
     Dates: start: 20050401
  11. RED BLOOD CELLS [Concomitant]
     Dosage: 2 U, UNK
  12. CRYOPRECIPITATES [Concomitant]
     Dosage: 10 U, UNK
  13. PLATELETS [Concomitant]
     Dosage: 2 U, UNK
  14. DOPAMINE HCL [Concomitant]
  15. EPINEPHRINE [Concomitant]
  16. NITROGLYCERIN [Concomitant]

REACTIONS (14)
  - DEATH [None]
  - FEAR [None]
  - MULTI-ORGAN FAILURE [None]
  - RENAL IMPAIRMENT [None]
  - STRESS [None]
  - RENAL FAILURE [None]
  - RENAL INJURY [None]
  - EMOTIONAL DISTRESS [None]
  - ANXIETY [None]
  - PAIN [None]
  - ANHEDONIA [None]
  - RESPIRATORY FAILURE [None]
  - UNEVALUABLE EVENT [None]
  - INJURY [None]
